FAERS Safety Report 11751776 (Version 1)
Quarter: 2015Q4

REPORT INFORMATION
  Report Type: Spontaneous
  Country: US (occurrence: US)
  Receive Date: 20151118
  Receipt Date: 20151118
  Transmission Date: 20160304
  Serious: No
  Sender: FDA-Public Use
  Company Number: US-GALDERMA-US15007063

PATIENT
  Age: 56 Year
  Sex: Female

DRUGS (1)
  1. METRONIDAZOLE CREAM (METRONIDAZOLE) 0.75% [Suspect]
     Active Substance: METRONIDAZOLE
     Indication: RASH
     Dosage: 0.75%
     Route: 061
     Dates: start: 201507

REACTIONS (2)
  - Rash macular [Unknown]
  - Product use issue [Unknown]

NARRATIVE: CASE EVENT DATE: 201507
